FAERS Safety Report 14975370 (Version 1)
Quarter: 2018Q2

REPORT INFORMATION
  Report Type: Spontaneous
  Country: DE (occurrence: DE)
  Receive Date: 20180605
  Receipt Date: 20180605
  Transmission Date: 20180711
  Serious: Yes (Hospitalization)
  Sender: FDA-Public Use
  Company Number: DE-PFIZER INC-2018226298

PATIENT
  Age: 41 Year
  Sex: Female

DRUGS (3)
  1. IBUPROFEN. [Suspect]
     Active Substance: IBUPROFEN
     Indication: BACK PAIN
     Dosage: 600 MG-1800MG DAILY, WHEN REQUIRED
     Dates: start: 2009
  2. LEVOTHYROXIN [Concomitant]
     Active Substance: LEVOTHYROXINE
     Dosage: 100 UG, 1X/DAY  (1-0-0-0)
  3. PANTOPRAZOL [Concomitant]
     Active Substance: PANTOPRAZOLE SODIUM
     Dosage: 400 MG, 1X/DAY (1-0-0-0)

REACTIONS (5)
  - Accidental overdose [Unknown]
  - Pain [Unknown]
  - Medication error [Unknown]
  - Abdominal pain [Unknown]
  - Drug administration error [Unknown]
